FAERS Safety Report 18335155 (Version 2)
Quarter: 2020Q4

REPORT INFORMATION
  Report Type: Spontaneous
  Country: US (occurrence: US)
  Receive Date: 20201001
  Receipt Date: 20201007
  Transmission Date: 20210113
  Serious: Yes (Other)
  Sender: FDA-Public Use
  Company Number: US-ASTRAZENECA-2020SF23439

PATIENT
  Age: 17977 Day
  Sex: Male
  Weight: 136.5 kg

DRUGS (36)
  1. HUMALOG [Concomitant]
     Active Substance: INSULIN LISPRO
     Dates: start: 20160129
  2. VANCOMYCIN [Concomitant]
     Active Substance: VANCOMYCIN
     Dates: start: 20160131
  3. FARXIGA [Suspect]
     Active Substance: DAPAGLIFLOZIN PROPANEDIOL
     Indication: TYPE 2 DIABETES MELLITUS
     Route: 048
     Dates: start: 20140721, end: 20170125
  4. LISINOPRIL. [Concomitant]
     Active Substance: LISINOPRIL
     Dates: start: 20140205
  5. DANTROLENE SODIUM. [Concomitant]
     Active Substance: DANTROLENE SODIUM
     Dates: start: 20140219
  6. RISPERIDONE. [Concomitant]
     Active Substance: RISPERIDONE
     Dates: start: 20140219
  7. TRADJENTA [Concomitant]
     Active Substance: LINAGLIPTIN
     Dates: start: 20140502
  8. JENTADUETO [Concomitant]
     Active Substance: LINAGLIPTIN\METFORMIN HYDROCHLORIDE
     Dates: start: 20140711
  9. CLONIDINE. [Concomitant]
     Active Substance: CLONIDINE
     Dates: start: 20150601
  10. ZOFRAN [Concomitant]
     Active Substance: ONDANSETRON HYDROCHLORIDE
     Dates: start: 20160129
  11. MIDAZOLAM. [Concomitant]
     Active Substance: MIDAZOLAM
     Dates: start: 20150409
  12. FARXIGA [Suspect]
     Active Substance: DAPAGLIFLOZIN PROPANEDIOL
     Indication: WEIGHT DECREASED
     Route: 048
     Dates: start: 20160128
  13. HYDROCODON-ACETAMINOPHN [Concomitant]
     Dates: start: 20140206
  14. AMIODARONE [Concomitant]
     Active Substance: AMIODARONE
     Dates: start: 20150408
  15. FARXIGA [Suspect]
     Active Substance: DAPAGLIFLOZIN PROPANEDIOL
     Indication: WEIGHT DECREASED
     Route: 048
     Dates: start: 20140721, end: 20170125
  16. VENLAFAXINE [Concomitant]
     Active Substance: VENLAFAXINE HYDROCHLORIDE
     Dates: start: 20140206
  17. LYRICA [Concomitant]
     Active Substance: PREGABALIN
     Dates: start: 20150313
  18. CEFAZOLIN [Concomitant]
     Active Substance: CEFAZOLIN
     Dates: start: 20140205
  19. ZOSYN [Concomitant]
     Active Substance: PIPERACILLIN SODIUM\TAZOBACTAM SODIUM
     Dates: start: 20150409
  20. FARXIGA [Suspect]
     Active Substance: DAPAGLIFLOZIN PROPANEDIOL
     Indication: TYPE 2 DIABETES MELLITUS
     Route: 048
     Dates: start: 20160128
  21. METFORMIN [Concomitant]
     Active Substance: METFORMIN HYDROCHLORIDE
     Dates: start: 20140222
  22. AMBIEN [Concomitant]
     Active Substance: ZOLPIDEM TARTRATE
     Dates: start: 20160129
  23. PEPCID [Concomitant]
     Active Substance: FAMOTIDINE
     Dates: start: 20150409
  24. FARXIGA [Suspect]
     Active Substance: DAPAGLIFLOZIN PROPANEDIOL
     Indication: BLOOD PRESSURE DECREASED
     Route: 048
     Dates: start: 20160128
  25. CLONAZEPAM. [Concomitant]
     Active Substance: CLONAZEPAM
     Dates: start: 20140205
  26. METRONIDAZOLE. [Concomitant]
     Active Substance: METRONIDAZOLE
     Dates: start: 20160118
  27. FARXIGA [Suspect]
     Active Substance: DAPAGLIFLOZIN PROPANEDIOL
     Indication: BLOOD PRESSURE DECREASED
     Route: 048
     Dates: start: 20140721, end: 20170125
  28. ASPIRIN. [Concomitant]
     Active Substance: ASPIRIN
     Dates: start: 20140205
  29. GUANFACINE. [Concomitant]
     Active Substance: GUANFACINE
     Dates: start: 20140208
  30. FERROUS SULFATE. [Concomitant]
     Active Substance: FERROUS SULFATE
     Dates: start: 20160131
  31. ATIVAN [Concomitant]
     Active Substance: LORAZEPAM
     Dates: start: 20160129
  32. LOVENOX [Concomitant]
     Active Substance: ENOXAPARIN SODIUM
     Dates: start: 20150418
  33. NOREPINEPHRINE. [Concomitant]
     Active Substance: NOREPINEPHRINE
     Dates: start: 20150407
  34. CLINDAMYCIN. [Concomitant]
     Active Substance: CLINDAMYCIN
     Dates: start: 20150409
  35. MEROPENEM. [Concomitant]
     Active Substance: MEROPENEM
     Dates: start: 20150409
  36. HYDROMORPHONE [Concomitant]
     Active Substance: HYDROMORPHONE
     Dates: start: 20150411

REACTIONS (11)
  - Pancreatitis necrotising [Unknown]
  - Fournier^s gangrene [Unknown]
  - Sepsis [Unknown]
  - Perirectal abscess [Unknown]
  - Cellulitis [Unknown]
  - Septic shock [Unknown]
  - Respiratory failure [Unknown]
  - Acute kidney injury [Unknown]
  - Renal tubular necrosis [Unknown]
  - Acute respiratory failure [Unknown]
  - Renal failure [Unknown]

NARRATIVE: CASE EVENT DATE: 20150406
